FAERS Safety Report 16477827 (Version 2)
Quarter: 2019Q3

REPORT INFORMATION
  Report Type: Report from Study
  Country: IT (occurrence: IT)
  Receive Date: 20190626
  Receipt Date: 20190710
  Transmission Date: 20191004
  Serious: Yes (Hospitalization)
  Sender: FDA-Public Use
  Company Number: IT-ACCORD-134980

PATIENT
  Age: 64 Year
  Sex: Female

DRUGS (3)
  1. BISOPROLOL [Suspect]
     Active Substance: BISOPROLOL
     Indication: SUPRAVENTRICULAR TACHYCARDIA
     Route: 048
     Dates: start: 20190312, end: 20190409
  2. ALLOPURINOL. [Suspect]
     Active Substance: ALLOPURINOL
     Indication: SUPRAVENTRICULAR TACHYCARDIA
     Route: 048
     Dates: start: 20190315, end: 20190409
  3. CARDIRENE [Suspect]
     Active Substance: ASPIRIN DL-LYSINE
     Indication: SUPRAVENTRICULAR TACHYCARDIA
     Dosage: STRENGTH: 75 MG
     Route: 048
     Dates: start: 20190315, end: 20190409

REACTIONS (3)
  - Off label use [Unknown]
  - Dermatitis bullous [Recovering/Resolving]
  - Drug eruption [Recovering/Resolving]

NARRATIVE: CASE EVENT DATE: 20190408
